FAERS Safety Report 7892999-6 (Version None)
Quarter: 2011Q4

REPORT INFORMATION
  Report Type: 
  Country: None (occurrence: None)
  Receive Date: 20111104
  Receipt Date: 20111030
  Transmission Date: 20120403
  Serious: Yes (Death, Other)
  Sender: FDA-Public Use
  Company Number: NZ-B.I. PHARMACEUTICALS,INC./RIDGEFIELD-2011-AU-02009AU

PATIENT
  Age: 8 Decade
  Sex: Male

DRUGS (2)
  1. WARFARIN SODIUM [Concomitant]
  2. PRADAXA [Suspect]

REACTIONS (2)
  - TRANSIENT ISCHAEMIC ATTACK [None]
  - CONVULSION [None]
